FAERS Safety Report 9503148 (Version 1)
Quarter: 2013Q3

REPORT INFORMATION
  Report Type: Spontaneous
  Country: US (occurrence: US)
  Receive Date: 20130906
  Receipt Date: 20130906
  Transmission Date: 20140515
  Serious: No
  Sender: FDA-Public Use
  Company Number: US-PFIZER INC-2013254883

PATIENT
  Age: 60 Year
  Sex: Male

DRUGS (4)
  1. LYRICA [Suspect]
     Indication: PAIN
     Dosage: 150 MG, 2X/DAY
     Route: 048
  2. MS CONTIN [Concomitant]
     Dosage: 30 MG, 3X/DAY
  3. OXYCODONE [Concomitant]
     Dosage: 10 MG, UNK
  4. LORAZEPAM [Concomitant]
     Dosage: 0.5 MG, UNK

REACTIONS (1)
  - Therapeutic response unexpected [Unknown]
